FAERS Safety Report 8489205-0 (Version None)
Quarter: 2012Q3

REPORT INFORMATION
  Report Type: 
  Country: None (occurrence: None)
  Receive Date: 20120705
  Receipt Date: 20120629
  Transmission Date: 20120928
  Serious: Yes (Life-Threatening, Hospitalization, Other)
  Sender: FDA-Public Use
  Company Number: DE-PFIZER INC-2012091931

PATIENT
  Age: 53 Year
  Sex: Male
  Weight: 86.5 kg

DRUGS (13)
  1. GENOTROPIN [Suspect]
     Dosage: 0.5 MG, 1X/DAY
     Dates: start: 20020419
  2. HYDROCORTISONE [Concomitant]
     Dosage: 20 MG, DAILY
     Route: 048
     Dates: start: 20020101
  3. GENOTROPIN [Suspect]
     Dosage: 1 MG, 1X/DAY
     Dates: start: 20100115
  4. CORTISONE ACETATE [Concomitant]
     Indication: BLOOD CORTICOTROPHIN DECREASED
     Dosage: 12.5 MG, DAILY
     Dates: start: 19970701, end: 20011231
  5. TESTOSTERONE [Concomitant]
     Dosage: 25 UNK, DAILY
     Dates: start: 20080416
  6. GENOTROPIN [Suspect]
     Dosage: 0.2 MG, 1X/DAY
     Dates: start: 20020329
  7. GENOTROPIN [Suspect]
     Dosage: 0.8 MG, 1X/DAY
     Dates: start: 20080416
  8. GENOTROPIN [Suspect]
     Dosage: 0.3 MG, 1X/DAY
     Dates: start: 20020405
  9. GENOTROPIN [Suspect]
     Dosage: 0.6 MG, 1X/DAY
     Dates: start: 20020426
  10. PRASTERONE [Concomitant]
     Indication: BLOOD CORTICOTROPHIN DECREASED
     Dosage: 25MG DAILY / 10MG TWICE DAILY
     Route: 048
     Dates: start: 20020101
  11. GENOTROPIN [Suspect]
     Indication: GROWTH HORMONE DEFICIENCY
     Dosage: 1 MG, 1X/DAY
     Dates: start: 20020322
  12. GENOTROPIN [Suspect]
     Dosage: 0.4 MG, 1X/DAY
     Dates: start: 20020412
  13. GENOTROPIN [Suspect]
     Dosage: 0.9 MG, 1X/DAY
     Dates: start: 20090101

REACTIONS (1)
  - NEOPLASM [None]
